FAERS Safety Report 22147551 (Version 1)
Quarter: 2023Q1

REPORT INFORMATION
  Report Type: Spontaneous
  Country: FI (occurrence: FI)
  Receive Date: 20230328
  Receipt Date: 20230328
  Transmission Date: 20230417
  Serious: Yes (Hospitalization)
  Sender: FDA-Public Use
  Company Number: None

PATIENT
  Age: 36 Year
  Sex: Female

DRUGS (1)
  1. KYLEENA [Suspect]
     Active Substance: LEVONORGESTREL
     Indication: Contraception
     Dosage: 17.5?G/DAY
     Route: 015
     Dates: start: 20210421, end: 20230221

REACTIONS (3)
  - Pregnancy with contraceptive device [Recovering/Resolving]
  - Haemorrhage in pregnancy [Recovering/Resolving]
  - Abortion induced [Recovering/Resolving]

NARRATIVE: CASE EVENT DATE: 20230117
